FAERS Safety Report 9749714 (Version 1)
Quarter: 2013Q4

REPORT INFORMATION
  Report Type: Spontaneous
  Country: US (occurrence: US)
  Receive Date: 20131212
  Receipt Date: 20131212
  Transmission Date: 20140711
  Serious: Yes (Hospitalization)
  Sender: FDA-Public Use
  Company Number: US-BRISTOL-MYERS SQUIBB COMPANY-19877414

PATIENT
  Age: 62 Year
  Sex: Female
  Weight: 102.49 kg

DRUGS (1)
  1. ABATACEPT SUBQ INJECTION 125MG/ML [Suspect]
     Indication: RHEUMATOID ARTHRITIS
     Dosage: RESTARTED IN OCT13
     Route: 058
     Dates: start: 2012

REACTIONS (2)
  - Obesity surgery [Unknown]
  - Drug dose omission [Unknown]
